FAERS Safety Report 21693705 (Version 1)
Quarter: 2022Q4

REPORT INFORMATION
  Report Type: Spontaneous
  Country: US (occurrence: None)
  Receive Date: 20221206
  Receipt Date: 20221206
  Transmission Date: 20230113
  Serious: Yes (Hospitalization)
  Sender: FDA-Public Use
  Company Number: None

PATIENT
  Age: 79 Year
  Sex: Female

DRUGS (1)
  1. TERIPARATIDE [Suspect]
     Active Substance: TERIPARATIDE
     Dosage: 20MCG DAILY SUBCUTANEOUS?
     Route: 058
     Dates: start: 202206

REACTIONS (3)
  - Fall [None]
  - Hip fracture [None]
  - Clavicle fracture [None]

NARRATIVE: CASE EVENT DATE: 20221206
